FAERS Safety Report 25714584 (Version 2)
Quarter: 2025Q3

REPORT INFORMATION
  Report Type: Report from Study
  Country: JP (occurrence: JP)
  Receive Date: 20250822
  Receipt Date: 20250908
  Transmission Date: 20251020
  Serious: Yes (Hospitalization)
  Sender: AMGEN
  Company Number: JP-BEH-2025216330

PATIENT
  Age: 75 Year
  Sex: Female
  Weight: 56.6 kg

DRUGS (9)
  1. AVACOPAN [Suspect]
     Active Substance: AVACOPAN
     Indication: Vasculitis
     Dosage: 30 MG, BID
     Route: 048
     Dates: start: 20250728
  2. RITUXIMAB [Suspect]
     Active Substance: RITUXIMAB
     Indication: Vasculitis
     Dosage: 555 MG, BID
     Route: 065
     Dates: start: 20250729, end: 20250812
  3. SULFAMETHOXAZOLE\TRIMETHOPRIM [Suspect]
     Active Substance: SULFAMETHOXAZOLE\TRIMETHOPRIM
     Indication: Product used for unknown indication
     Route: 065
     Dates: start: 20250808, end: 20250812
  4. PREDONINE [Concomitant]
     Active Substance: PREDNISOLONE
     Indication: Vasculitis
     Dosage: 15 MILLIGRAM, QD
     Route: 065
     Dates: start: 20250811
  5. NIFEDIPINE [Concomitant]
     Active Substance: NIFEDIPINE
     Indication: Hypertension
     Dosage: 20 MG, SUSTAINED-RELEASE TABLET
     Route: 065
  6. AZILSARTAN KAMEDOXOMIL [Concomitant]
     Active Substance: AZILSARTAN KAMEDOXOMIL
     Indication: Hypertension
     Dosage: 20 MILLIGRAM, QD
     Route: 065
  7. TENELIGLIPTIN HYDROBROMIDE HYDRATE [Concomitant]
     Active Substance: TENELIGLIPTIN HYDROBROMIDE HYDRATE
     Indication: Diabetes mellitus
     Dosage: 20 MILLIGRAM, QD
     Route: 065
  8. ROSUVASTATIN [Concomitant]
     Active Substance: ROSUVASTATIN
     Indication: Dyslipidaemia
     Dosage: 5 MILLIGRAM, QD
     Route: 065
  9. DIPHENIDOL HYDROCHLORIDE [Concomitant]
     Active Substance: DIPHENIDOL HYDROCHLORIDE
     Indication: Dizziness
     Dosage: 25 MG, BID
     Route: 065

REACTIONS (3)
  - White blood cell count decreased [Unknown]
  - Platelet count decreased [Unknown]
  - Off label use [Unknown]

NARRATIVE: CASE EVENT DATE: 20250812
